FAERS Safety Report 14352368 (Version 2)
Quarter: 2018Q1

REPORT INFORMATION
  Report Type: Report from Study
  Country: None (occurrence: US)
  Receive Date: 20180104
  Receipt Date: 20180117
  Transmission Date: 20180509
  Serious: Yes (Hospitalization)
  Sender: FDA-Public Use
  Company Number: US-ABBVIE-17P-163-2207090-00

PATIENT
  Age: 64 Year
  Sex: Male
  Weight: 56.75 kg

DRUGS (1)
  1. MAVYRET [Suspect]
     Active Substance: GLECAPREVIR\PIBRENTASVIR
     Indication: HEPATITIS C
     Dosage: AS DIRECTED
     Route: 048
     Dates: start: 20171212, end: 20171221

REACTIONS (4)
  - Subdural haematoma [Recovering/Resolving]
  - Fall [Not Recovered/Not Resolved]
  - Dysphagia [Unknown]
  - Aphasia [Unknown]

NARRATIVE: CASE EVENT DATE: 20171221
